FAERS Safety Report 18004907 (Version 1)
Quarter: 2020Q3

REPORT INFORMATION
  Report Type: Spontaneous
  Country: US (occurrence: US)
  Receive Date: 20200709
  Receipt Date: 20200709
  Transmission Date: 20201103
  Serious: Yes (Other)
  Sender: FDA-Public Use
  Company Number: None

PATIENT
  Age: 56 Year
  Sex: Male
  Weight: 81 kg

DRUGS (7)
  1. REMDESIVIR. [Suspect]
     Active Substance: REMDESIVIR
     Indication: COVID-19
     Route: 040
     Dates: start: 20200705, end: 20200706
  2. BUDESONIDE 0.5MG NEB Q12H [Concomitant]
     Dates: start: 20200705
  3. DOCUSATE 100MG PO BID [Concomitant]
     Dates: start: 20200704
  4. INSULIN GLARGINE 10 UNIT SUBCUT QBEDTIME [Concomitant]
     Dates: start: 20200707
  5. DEXAMETHASONE 6MG IV DAILY [Concomitant]
     Dates: start: 20200704
  6. SENNA 8.6MG PO DAILY [Concomitant]
     Dates: start: 20200705
  7. INSULIN LISPRO SLIDING SCALE [Concomitant]
     Dates: start: 20200707

REACTIONS (2)
  - Dyspnoea [None]
  - Nausea [None]

NARRATIVE: CASE EVENT DATE: 20200707
